FAERS Safety Report 7888874-3 (Version None)
Quarter: 2011Q4

REPORT INFORMATION
  Report Type: 
  Country: None (occurrence: None)
  Receive Date: 20111031
  Receipt Date: 20111018
  Transmission Date: 20120403
  Serious: Yes (Hospitalization)
  Sender: FDA-Public Use
  Company Number: 2011SP048266

PATIENT
  Age: 56 Year
  Sex: Male

DRUGS (3)
  1. BETAMETHASONE SODIUM PHOSPHATE [Suspect]
     Indication: HERNIA
     Dosage: 3 DF; IA
     Route: 014
     Dates: start: 20111006, end: 20111011
  2. DONA /00943602/) [Concomitant]
  3. VITAMIN TAB [Concomitant]

REACTIONS (3)
  - FALL [None]
  - INJECTION SITE PAIN [None]
  - CONVULSION [None]
